FAERS Safety Report 13175925 (Version 3)
Quarter: 2017Q1

REPORT INFORMATION
  Report Type: Spontaneous
  Country: FI (occurrence: FI)
  Receive Date: 20170201
  Receipt Date: 20170216
  Transmission Date: 20170428
  Serious: Yes (Hospitalization)
  Sender: FDA-Public Use
  Company Number: FI-JNJFOC-20170127704

PATIENT
  Age: 29 Year
  Sex: Male

DRUGS (2)
  1. XARELTO [Suspect]
     Active Substance: RIVAROXABAN
     Indication: PULMONARY EMBOLISM
     Route: 048
     Dates: start: 201605, end: 2016
  2. XARELTO [Suspect]
     Active Substance: RIVAROXABAN
     Indication: PULMONARY EMBOLISM
     Route: 048
     Dates: start: 2016, end: 2016

REACTIONS (2)
  - Pulmonary embolism [Recovered/Resolved]
  - Pulmonary infarction [Recovered/Resolved]

NARRATIVE: CASE EVENT DATE: 201611
